FAERS Safety Report 8233070-3 (Version None)
Quarter: 2012Q1

REPORT INFORMATION
  Report Type: 
  Country: None (occurrence: None)
  Receive Date: 20120326
  Receipt Date: 20120319
  Transmission Date: 20120608
  Serious: No
  Sender: FDA-Public Use
  Company Number: US-BIOGENIDEC-2012BI009644

PATIENT
  Sex: Female

DRUGS (1)
  1. TYSABRI [Suspect]
     Indication: MULTIPLE SCLEROSIS
     Route: 042
     Dates: start: 20110727

REACTIONS (5)
  - HEPATIC ENZYME INCREASED [None]
  - VISION BLURRED [None]
  - BALANCE DISORDER [None]
  - SPEECH DISORDER [None]
  - MULTIPLE SCLEROSIS RELAPSE [None]
